FAERS Safety Report 16300742 (Version 1)
Quarter: 2019Q2

REPORT INFORMATION
  Report Type: Spontaneous
  Country: GB (occurrence: GB)
  Receive Date: 20190510
  Receipt Date: 20190510
  Transmission Date: 20190711
  Serious: Yes (Other)
  Sender: FDA-Public Use
  Company Number: GB-PFIZER INC-2019195695

PATIENT
  Age: 36 Year
  Sex: Female
  Weight: 76 kg

DRUGS (5)
  1. IBUPROFEN. [Suspect]
     Active Substance: IBUPROFEN
     Dosage: UNK
  2. NITROFURANTOIN. [Concomitant]
     Active Substance: NITROFURANTOIN
     Dosage: 2 DF, 1X/DAY
     Dates: start: 20190206, end: 20190213
  3. CHLORPHENAMINE [Concomitant]
     Active Substance: CHLORPHENIRAMINE MALEATE
     Dosage: TAKE ONE EVERY 4-6 HRS
     Dates: start: 20190311, end: 20190312
  4. AMOXICILLIN. [Concomitant]
     Active Substance: AMOXICILLIN
     Dosage: 3 DF, DAILY
     Dates: start: 20190227, end: 20190306
  5. IBUPROFEN. [Suspect]
     Active Substance: IBUPROFEN
     Dosage: 400 MG, UNK
     Dates: start: 20190311

REACTIONS (1)
  - Lip swelling [Recovered/Resolved]
